FAERS Safety Report 8139574-6 (Version None)
Quarter: 2012Q1

REPORT INFORMATION
  Report Type: 
  Country: None (occurrence: None)
  Receive Date: 20120215
  Receipt Date: 20120131
  Transmission Date: 20120608
  Serious: Yes (Hospitalization, Other)
  Sender: FDA-Public Use
  Company Number: PHHY2011US49346

PATIENT
  Sex: Female

DRUGS (15)
  1. NEORAL [Suspect]
     Dosage: 125 MG, BID
     Route: 048
  2. FUROSEMIDE [Concomitant]
     Dosage: 20 MG, QD
     Route: 048
     Dates: start: 20101006, end: 20120105
  3. ACETAMINOPHEN [Concomitant]
     Dosage: 500 MG, UNK
     Route: 048
     Dates: start: 20110628
  4. NEXIUM [Concomitant]
     Dosage: 40 MG, QD
     Dates: start: 20110217, end: 20120105
  5. PREDNISONE TAB [Concomitant]
     Indication: RENAL TRANSPLANT
     Dosage: 5 MG, QD
     Dates: start: 20110628
  6. NEORAL [Suspect]
     Indication: LIVER TRANSPLANT
     Dosage: 125 MG, QD
     Route: 048
     Dates: start: 19960101
  7. FOLIC ACID [Concomitant]
     Dosage: 1 MG, QD
     Route: 048
     Dates: start: 20101001
  8. HUMULIN R [Concomitant]
     Indication: DIABETES MELLITUS
     Dosage: UNK UKN, UNK
     Route: 058
     Dates: start: 20101108
  9. TRICOR [Concomitant]
     Dosage: 145 MG, QD
     Route: 048
     Dates: start: 20100628
  10. HYDROCODONE [Concomitant]
     Dosage: 5 MG, UNK
     Route: 048
     Dates: start: 20110628
  11. LEVOTHYROXINE SODIUM [Concomitant]
     Indication: HYPOTHYROIDISM
     Dosage: 50 UG, QD
     Route: 048
     Dates: start: 20110628, end: 20111206
  12. COUMADIN [Concomitant]
     Dosage: 1 MG, UNK
     Route: 048
     Dates: start: 20111122
  13. NEORAL [Suspect]
     Indication: RENAL TRANSPLANT
     Dosage: 125 MG, QD
     Route: 048
     Dates: start: 20101228
  14. LIPITOR [Concomitant]
     Dosage: 40 MG, UNK
     Route: 048
     Dates: start: 20101001, end: 20111031
  15. ASPIRIN [Concomitant]
     Dosage: 81 MG, QD
     Route: 048
     Dates: start: 20100708

REACTIONS (24)
  - FALL [None]
  - CANDIDURIA [None]
  - DEEP VEIN THROMBOSIS [None]
  - MUSCULOSKELETAL PAIN [None]
  - TOXICITY TO VARIOUS AGENTS [None]
  - URINARY TRACT INFECTION ENTEROCOCCAL [None]
  - MUSCULOSKELETAL DISCOMFORT [None]
  - ATRIAL FLUTTER [None]
  - NEPHROPATHY TOXIC [None]
  - COMPLICATIONS OF TRANSPLANTED KIDNEY [None]
  - OEDEMA [None]
  - RENAL TUBULAR ATROPHY [None]
  - KIDNEY FIBROSIS [None]
  - ACUTE PRERENAL FAILURE [None]
  - ACUTE CORONARY SYNDROME [None]
  - CHEST PAIN [None]
  - MALAISE [None]
  - ANKLE FRACTURE [None]
  - ATRIAL FIBRILLATION [None]
  - FATIGUE [None]
  - GAIT DISTURBANCE [None]
  - ARTHRALGIA [None]
  - DYSPNOEA [None]
  - DIARRHOEA [None]
